FAERS Safety Report 6566762-2 (Version None)
Quarter: 2010Q1

REPORT INFORMATION
  Report Type: 
  Country: None (occurrence: None)
  Receive Date: 20100202
  Receipt Date: 20100122
  Transmission Date: 20100710
  Serious: Yes (Hospitalization)
  Sender: FDA-Public Use
  Company Number: US-PFIZER INC-2009288385

PATIENT
  Sex: Male

DRUGS (7)
  1. SUTENT [Suspect]
     Indication: METASTATIC RENAL CELL CARCINOMA
     Dosage: 50 MG, 1X/DAY, 4-2 CYCLE
     Dates: start: 20091002, end: 20091031
  2. LEVOXYL [Concomitant]
  3. PLAVIX [Concomitant]
  4. ZETIA [Concomitant]
  5. TRICOR [Concomitant]
  6. FELODIPINE [Concomitant]
  7. ZOMETA [Concomitant]
     Dosage: UNK
     Dates: start: 20090917

REACTIONS (3)
  - DECREASED APPETITE [None]
  - RENAL FAILURE [None]
  - WEIGHT DECREASED [None]
